FAERS Safety Report 23185459 (Version 1)
Quarter: 2023Q4

REPORT INFORMATION
  Report Type: Report from Study
  Country: US (occurrence: None)
  Receive Date: 20231115
  Receipt Date: 20231115
  Transmission Date: 20240109
  Serious: Yes (Hospitalization, Other)
  Sender: FDA-Public Use
  Company Number: 2023A254192

PATIENT
  Sex: Male
  Weight: 74.8 kg

DRUGS (9)
  1. KOSELUGO [Suspect]
     Active Substance: SELUMETINIB
     Indication: Neoplasm malignant
     Route: 048
     Dates: start: 20230701
  2. ASPIRIN [Concomitant]
     Active Substance: ASPIRIN
  3. CLARITIN [Concomitant]
     Active Substance: LORATADINE
  4. FERROUS FUMARATE [Concomitant]
     Active Substance: FERROUS FUMARATE
  5. FINASTERIDE [Concomitant]
     Active Substance: FINASTERIDE
  6. HYDROCHLOROTHIAZIDE [Concomitant]
     Active Substance: HYDROCHLOROTHIAZIDE
  7. IMODIUM [Concomitant]
     Active Substance: LOPERAMIDE HYDROCHLORIDE
  8. LANTUS [Concomitant]
     Active Substance: INSULIN GLARGINE
  9. LASIX [Concomitant]
     Active Substance: FUROSEMIDE

REACTIONS (6)
  - Orbital oedema [Not Recovered/Not Resolved]
  - Pneumonia [Recovered/Resolved]
  - Stomatitis [Not Recovered/Not Resolved]
  - Oral pain [Unknown]
  - Alopecia [Not Recovered/Not Resolved]
  - Hair colour changes [Unknown]
